FAERS Safety Report 4658705-3 (Version None)
Quarter: 2005Q2

REPORT INFORMATION
  Report Type: 
  Country: None (occurrence: None)
  Receive Date: 20050509
  Receipt Date: 20050421
  Transmission Date: 20051028
  Serious: Yes (Hospitalization)
  Sender: FDA-Public Use
  Company Number: DSA_26334_2005

PATIENT
  Age: 51 Year
  Sex: Female

DRUGS (19)
  1. TEMESTA [Suspect]
     Dosage: 1.5 MG Q DAY PO
     Route: 048
     Dates: start: 20050207
  2. ANTRA [Suspect]
     Dosage: 20 MG Q DAY PO
     Route: 048
  3. DIFLUCAN [Suspect]
     Dosage: 200 MG Q DAY PO
     Route: 048
     Dates: start: 20050218
  4. MAXIPIME [Suspect]
     Indication: BACTERIAL INFECTION
     Dosage: 2 MG TID UNK
     Dates: start: 20050218
  5. MORPHINE [Suspect]
     Dosage: 22 MG Q DAY IV
     Route: 042
     Dates: start: 20050218, end: 20050301
  6. SANDIMMUNE [Suspect]
     Indication: PROPHYLAXIS AGAINST TRANSPLANT REJECTION
     Dosage: 240 MG Q DAY PO
     Route: 048
     Dates: start: 20050216
  7. SEROPRAM [Suspect]
     Indication: CONDUCT DISORDER
     Dosage: 20 MG Q DAY PO
     Route: 048
  8. SEROPRAM [Suspect]
     Indication: DEPRESSION
     Dosage: 20 MG Q DAY PO
     Route: 048
  9. VFEND [Suspect]
     Dosage: 200 MG QID IV
     Route: 042
  10. VFEND [Suspect]
     Dosage: 200 MG QID PO
     Route: 048
     Dates: start: 20050225, end: 20050225
  11. ZOVIRAX [Suspect]
     Indication: PROPHYLAXIS AGAINST TRANSPLANT REJECTION
     Dosage: 800 MG Q DAY PO
     Route: 048
     Dates: start: 20050214
  12. LIQUAEMIN INJ [Concomitant]
  13. PROCICLIDE [Concomitant]
  14. DATALGAN [Concomitant]
  15. FLAGYL [Concomitant]
  16. TARGOCID [Concomitant]
  17. LEUCOVORIN CALCIUM [Concomitant]
  18. PASPERTIN [Concomitant]
  19. ULCOGANT [Concomitant]

REACTIONS (8)
  - BRONCHOPULMONARY ASPERGILLOSIS [None]
  - CHOLESTASIS [None]
  - DISORIENTATION [None]
  - GASTROINTESTINAL MUCOSITIS [None]
  - HALLUCINATIONS, MIXED [None]
  - SOMNOLENCE [None]
  - STOMATITIS [None]
  - TRANSAMINASES ABNORMAL [None]
